FAERS Safety Report 4762805-7 (Version None)
Quarter: 2005Q3

REPORT INFORMATION
  Report Type: 
  Country: None (occurrence: None)
  Receive Date: 20050907
  Receipt Date: 20050830
  Transmission Date: 20060218
  Serious: Yes (Other)
  Sender: FDA-Public Use
  Company Number: US-MERCK-0509USA00075

PATIENT
  Age: 39 Year
  Sex: Female

DRUGS (5)
  1. COGENTIN [Suspect]
     Route: 048
  2. BOTOX [Suspect]
     Indication: TORTICOLLIS
     Route: 051
  3. BOTOX [Suspect]
     Route: 051
  4. CLONAZEPAM [Concomitant]
     Route: 065
  5. FLUOXETINE [Concomitant]
     Route: 065

REACTIONS (2)
  - ABORTION SPONTANEOUS [None]
  - DRUG EXPOSURE DURING PREGNANCY [None]
